FAERS Safety Report 10476314 (Version 3)
Quarter: 2014Q4

REPORT INFORMATION
  Report Type: Report from Study
  Country: FR (occurrence: FR)
  Receive Date: 20140925
  Receipt Date: 20141002
  Transmission Date: 20150528
  Serious: Yes (Hospitalization, Other)
  Sender: FDA-Public Use
  Company Number: FR-TEVA-431522USA

PATIENT
  Age: 66 Year
  Sex: Male

DRUGS (3)
  1. BENDAMUSTIN [Suspect]
     Active Substance: BENDAMUSTINE
     Dosage: UNKNOWN/D  85 MG/M2 DOSE  DAY 1 AND 2
     Dates: start: 20130821
  2. BENDAMUSTIN [Suspect]
     Active Substance: BENDAMUSTINE
     Indication: LYMPHOMA
     Dosage: UNKNOWN/D  85 MG/M2 DOSE  DAY 1 AND 2
     Dates: start: 20130717
  3. RITUXIMAB [Suspect]
     Active Substance: RITUXIMAB
     Indication: LYMPHOMA
     Dosage: UNKNOWN/D, 375 MG/M2  DAY1
     Dates: start: 20130821

REACTIONS (6)
  - Haemothorax [Recovered/Resolved]
  - Splenic infarction [Recovered/Resolved]
  - Haemorrhage [Recovered/Resolved]
  - Thrombocytopenia [Unknown]
  - Pleural effusion [Recovered/Resolved]
  - Splenic rupture [Unknown]

NARRATIVE: CASE EVENT DATE: 20130829
